FAERS Safety Report 15758842 (Version 1)
Quarter: 2018Q4

REPORT INFORMATION
  Report Type: Spontaneous
  Country: JP (occurrence: JP)
  Receive Date: 20181225
  Receipt Date: 20181225
  Transmission Date: 20190205
  Serious: Yes (Other)
  Sender: FDA-Public Use
  Company Number: JP-009507513-1812JPN002959J

PATIENT
  Age: 86 Year
  Sex: Female

DRUGS (1)
  1. CANCIDAS [Suspect]
     Active Substance: CASPOFUNGIN ACETATE
     Indication: ASPERGILLUS INFECTION
     Dosage: UNK
     Route: 041

REACTIONS (2)
  - Overdose [Unknown]
  - Infusion site necrosis [Unknown]
